FAERS Safety Report 20866342 (Version 2)
Quarter: 2022Q2

REPORT INFORMATION
  Report Type: Report from Study
  Country: US (occurrence: US)
  Receive Date: 20220524
  Receipt Date: 20220601
  Transmission Date: 20220721
  Serious: Yes (Hospitalization, Other)
  Sender: FDA-Public Use
  Company Number: US-BRISTOL-MYERS SQUIBB COMPANY-2022-043887

PATIENT
  Age: 64 Year
  Sex: Female
  Weight: 60.9 kg

DRUGS (3)
  1. NIVOLUMAB [Suspect]
     Active Substance: NIVOLUMAB
     Indication: Central nervous system lymphoma
     Route: 042
     Dates: start: 20220415
  2. IBRUTINIB [Suspect]
     Active Substance: IBRUTINIB
     Indication: Central nervous system lymphoma
     Route: 048
     Dates: start: 20220415
  3. IBRUTINIB [Suspect]
     Active Substance: IBRUTINIB
     Dosage: 420 MG, DAILY, 28 DAYS
     Route: 048

REACTIONS (2)
  - Syncope [Recovered/Resolved]
  - Fall [Recovered/Resolved]

NARRATIVE: CASE EVENT DATE: 20220514
